FAERS Safety Report 8247433-3 (Version None)
Quarter: 2012Q1

REPORT INFORMATION
  Report Type: 
  Country: None (occurrence: None)
  Receive Date: 20120330
  Receipt Date: 20120316
  Transmission Date: 20120608
  Serious: Yes (Hospitalization)
  Sender: FDA-Public Use
  Company Number: DE-ROCHE-1051152

PATIENT
  Age: 70 Year
  Sex: Female
  Weight: 81.7 kg

DRUGS (2)
  1. VEMURAFENIB [Suspect]
     Indication: MALIGNANT MELANOMA
     Dosage: LAST DOSE PRIOR TO SAE: 16 MAR 2012
     Route: 048
     Dates: start: 20120217
  2. PANTOPRAZOLE [Concomitant]
     Dates: start: 20120218

REACTIONS (3)
  - RASH [None]
  - HYPOTENSION [None]
  - TUMOUR LYSIS SYNDROME [None]
